FAERS Safety Report 24579090 (Version 1)
Quarter: 2024Q4

REPORT INFORMATION
  Report Type: Report from Study
  Country: US (occurrence: US)
  Receive Date: 20241105
  Receipt Date: 20241105
  Transmission Date: 20250114
  Serious: Yes (Hospitalization, Other)
  Sender: UPSHER SMITH LABORATORIES
  Company Number: US-UPSHER-SMITH LABORATORIES, LLC-20241000188

PATIENT
  Age: 2 Year
  Sex: Male

DRUGS (2)
  1. VIGADRONE [Suspect]
     Active Substance: VIGABATRIN
     Indication: Infantile spasms
     Dosage: 17 ML, BID
     Route: 048
     Dates: start: 20241004
  2. VIGADRONE [Suspect]
     Active Substance: VIGABATRIN
     Dosage: 16.5 ML, BID
     Route: 048
     Dates: start: 20241004

REACTIONS (8)
  - Generalised tonic-clonic seizure [Not Recovered/Not Resolved]
  - Tracheitis [Not Recovered/Not Resolved]
  - Urinary tract infection [Not Recovered/Not Resolved]
  - Blindness [Not Recovered/Not Resolved]
  - Infantile spasms [Not Recovered/Not Resolved]
  - Crying [Not Recovered/Not Resolved]
  - Insomnia [Not Recovered/Not Resolved]
  - Aggression [Not Recovered/Not Resolved]

NARRATIVE: CASE EVENT DATE: 20241001
